FAERS Safety Report 6903536-4 (Version None)
Quarter: 2010Q3

REPORT INFORMATION
  Report Type: 
  Country: None (occurrence: None)
  Receive Date: 20100803
  Receipt Date: 20081021
  Transmission Date: 20110219
  Serious: No
  Sender: FDA-Public Use
  Company Number: US-PFIZER INC-2008089304

PATIENT
  Sex: Male
  Weight: 75 kg

DRUGS (4)
  1. LYRICA [Suspect]
     Indication: FIBROMYALGIA
     Dates: start: 20071201, end: 20080101
  2. DRUG, UNSPECIFIED [Concomitant]
  3. KLONOPIN [Concomitant]
  4. ANTIDEPRESSANTS [Concomitant]

REACTIONS (7)
  - DISTURBANCE IN ATTENTION [None]
  - DRY MOUTH [None]
  - FATIGUE [None]
  - FEELING ABNORMAL [None]
  - SOMNOLENCE [None]
  - SWELLING [None]
  - VISION BLURRED [None]
